FAERS Safety Report 23864078 (Version 3)
Quarter: 2024Q2

REPORT INFORMATION
  Report Type: Spontaneous
  Country: JP (occurrence: JP)
  Receive Date: 20240516
  Receipt Date: 20240624
  Transmission Date: 20240716
  Serious: Yes (Other)
  Sender: FDA-Public Use
  Company Number: JP-FERRINGPH-2024FE02360

PATIENT

DRUGS (6)
  1. PICOPREP [Suspect]
     Active Substance: ANHYDROUS CITRIC ACID\MAGNESIUM OXIDE\SODIUM PICOSULFATE
     Indication: Bowel preparation
     Dosage: 150 MG X 2, DAILY
     Route: 048
     Dates: start: 20240508, end: 20240508
  2. CALCIUM SENNOSIDES [Suspect]
     Active Substance: SENNOSIDES
     Indication: Bowel preparation
     Dosage: 12 X 2 MG, DAILY
     Route: 048
     Dates: start: 20240507, end: 20240507
  3. SODIUM PICOSULFATE [Suspect]
     Active Substance: SODIUM PICOSULFATE
     Indication: Bowel preparation
     Dosage: 1 DOSAGE FORM, DAILY
     Route: 048
     Dates: start: 20240507, end: 20240507
  4. AMLODIPINE BESYLATE [Concomitant]
     Active Substance: AMLODIPINE BESYLATE
     Indication: Hypertension
     Dosage: 1 DOSAGE FORM, DAILY
     Route: 048
  5. FEBRIC [Concomitant]
     Indication: Hyperuricaemia
     Dosage: 1 DOSAGE FORM, DAILY
     Route: 048
  6. URSO [Concomitant]
     Active Substance: URSODIOL
     Indication: Hepatic steatosis
     Dosage: 3 DOSAGE FORM, 3 TIMES DAILY
     Route: 048

REACTIONS (3)
  - Colitis ischaemic [Recovered/Resolved]
  - Hyperhidrosis [Recovered/Resolved]
  - Product use issue [Recovered/Resolved]

NARRATIVE: CASE EVENT DATE: 20240508
